FAERS Safety Report 23353602 (Version 2)
Quarter: 2024Q1

REPORT INFORMATION
  Report Type: Report from Study
  Country: IL (occurrence: IL)
  Receive Date: 20240101
  Receipt Date: 20240117
  Transmission Date: 20240409
  Serious: Yes (Death, Hospitalization, Other)
  Sender: FDA-Public Use
  Company Number: IL-ABBVIE-5564260

PATIENT
  Age: 93 Year
  Sex: Male

DRUGS (3)
  1. CARBIDOPA\LEVODOPA [Suspect]
     Active Substance: CARBIDOPA\LEVODOPA
     Indication: Parkinson^s disease
     Dosage: DURATION TEXT: REMAINS AT 16
     Route: 050
     Dates: start: 20191027
  2. CARBIDOPA\LEVODOPA [Suspect]
     Active Substance: CARBIDOPA\LEVODOPA
     Dosage: MORNING DOSE 12.0ML, CONTINUOUS DOSE 3.8ML/HOUR, EXTRA DOSE 2ML, DURATION TEXT: REMAINS AT 16
     Route: 050
  3. CARBIDOPA\LEVODOPA [Concomitant]
     Active Substance: CARBIDOPA\LEVODOPA
     Indication: Parkinson^s disease
     Dosage: REMAINS AT 16
     Route: 065

REACTIONS (4)
  - Dehydration [Recovering/Resolving]
  - General physical health deterioration [Unknown]
  - Metastatic neoplasm [Fatal]
  - Device breakage [Not Recovered/Not Resolved]

NARRATIVE: CASE EVENT DATE: 20240102
